FAERS Safety Report 25872300 (Version 1)
Quarter: 2025Q4

REPORT INFORMATION
  Report Type: Spontaneous
  Country: EU (occurrence: EU)
  Receive Date: 20251002
  Receipt Date: 20251002
  Transmission Date: 20260117
  Serious: Yes (Other)
  Sender: ALEXION PHARMACEUTICALS
  Company Number: EU-ASTRAZENECA-202509EEA023032PL

PATIENT
  Age: 67 Year
  Sex: Female

DRUGS (1)
  1. OLAPARIB [Suspect]
     Active Substance: OLAPARIB
     Indication: Ovarian cancer

REACTIONS (5)
  - Anaemia [Unknown]
  - Myelosuppression [Unknown]
  - Gastrointestinal inflammation [Unknown]
  - Metastases to peritoneum [Unknown]
  - Mesenteric panniculitis [Unknown]
